FAERS Safety Report 14220371 (Version 4)
Quarter: 2018Q3

REPORT INFORMATION
  Report Type: Spontaneous
  Country: US (occurrence: US)
  Receive Date: 20171123
  Receipt Date: 20180822
  Transmission Date: 20181010
  Serious: Yes (Hospitalization, Other)
  Sender: FDA-Public Use
  Company Number: US-BRISTOL-MYERS SQUIBB COMPANY-BMS-2017-005047

PATIENT
  Age: 61 Year
  Sex: Male

DRUGS (2)
  1. SPRYCEL [Suspect]
     Active Substance: DASATINIB
     Indication: CHRONIC MYELOID LEUKAEMIA
     Dosage: 100 MG, QD
     Route: 048
     Dates: start: 20150601
  2. OXYCODONE [Concomitant]
     Active Substance: OXYCODONE
     Indication: PRODUCT USED FOR UNKNOWN INDICATION
     Route: 065

REACTIONS (8)
  - Red blood cell count decreased [Unknown]
  - Urinary tract infection [Unknown]
  - Rash [Unknown]
  - White blood cell count decreased [Unknown]
  - Constipation [Unknown]
  - Dysphagia [Unknown]
  - Gastrointestinal infection [Unknown]
  - Kidney infection [Unknown]

NARRATIVE: CASE EVENT DATE: 20170101
